FAERS Safety Report 7977781-3 (Version None)
Quarter: 2011Q4

REPORT INFORMATION
  Report Type: 
  Country: None (occurrence: None)
  Receive Date: 20111214
  Receipt Date: 20111130
  Transmission Date: 20120403
  Serious: No
  Sender: FDA-Public Use
  Company Number: US-AMGEN-USASP2011063458

PATIENT
  Age: 5 Year
  Sex: Female

DRUGS (3)
  1. M-M-R II [Concomitant]
  2. METHOTREXATE [Concomitant]
     Dates: start: 20090101
  3. ENBREL [Suspect]
     Indication: JUVENILE ARTHRITIS
     Dosage: UNK
     Dates: start: 20101001

REACTIONS (1)
  - RASH MACULO-PAPULAR [None]
